FAERS Safety Report 4649164-5 (Version None)
Quarter: 2005Q2

REPORT INFORMATION
  Report Type: 
  Country: None (occurrence: None)
  Receive Date: 20050427
  Receipt Date: 20050407
  Transmission Date: 20051028
  Serious: No
  Sender: FDA-Public Use
  Company Number: USA050495217

PATIENT
  Sex: Female

DRUGS (2)
  1. CYMBALTA [Suspect]
  2. LEVAQUIN [Concomitant]

REACTIONS (1)
  - LIVER DISORDER [None]
